FAERS Safety Report 5423632-0 (Version None)
Quarter: 2007Q3

REPORT INFORMATION
  Report Type: 
  Country: None (occurrence: None)
  Receive Date: 20070823
  Receipt Date: 20070815
  Transmission Date: 20080115
  Serious: Yes (Other)
  Sender: FDA-Public Use
  Company Number: SE-ASTRAZENECA-2007SE04445

PATIENT
  Age: 3 Year
  Sex: Male

DRUGS (1)
  1. NEXIUM [Suspect]
     Dosage: 2-3 TABLETS

REACTIONS (1)
  - ACCIDENTAL OVERDOSE [None]
